FAERS Safety Report 9837511 (Version 4)
Quarter: 2014Q2

REPORT INFORMATION
  Report Type: Spontaneous
  Country: DE (occurrence: DE)
  Receive Date: 20140123
  Receipt Date: 20140421
  Transmission Date: 20141212
  Serious: Yes (Hospitalization, Disabling, Other)
  Sender: FDA-Public Use
  Company Number: PHHY2013DE147723

PATIENT
  Age: 61 Year
  Sex: Male

DRUGS (25)
  1. ULTIBRO BREEZHALER [Suspect]
     Indication: CHRONIC OBSTRUCTIVE PULMONARY DISEASE
     Dosage: 1 DF, QD
     Route: 055
     Dates: start: 20131211, end: 20131212
  2. EUPHYLONG [Concomitant]
     Indication: CHRONIC OBSTRUCTIVE PULMONARY DISEASE
     Dosage: 1 DF, BID
  3. ZYPREXA [Concomitant]
     Dosage: 1 DF, QD
     Dates: start: 201305
  4. REMERGIL [Concomitant]
     Dosage: 1 DF, QD
     Dates: start: 201305
  5. FORADIL [Concomitant]
  6. SPIRIVA [Concomitant]
     Dosage: 2 DF, QD
  7. BUDIAIR [Concomitant]
  8. BERODUAL [Concomitant]
  9. ACC [Concomitant]
  10. PREDNISOLON [Concomitant]
     Indication: CONDITION AGGRAVATED
     Dosage: 1 DF, QD, FOR 5 DAYS
  11. PREDNISOLON [Concomitant]
     Dosage: 0.5 DF, QD, FOR 5 DAYS
  12. PREDNISOLON [Concomitant]
     Dosage: 0.5 DF, QOD, FOR 10 DAYS
  13. PANTOZOL [Concomitant]
     Dosage: 1 DF, BID
  14. TORASEMID [Concomitant]
  15. PRADAXA [Concomitant]
     Dosage: 1 DF, BID
  16. VERAPAMIL [Concomitant]
     Dosage: 1 DF, BID
  17. DIGITOXIN [Concomitant]
     Dosage: 1 DF, QD
  18. ALLOPURINOL [Concomitant]
     Dosage: 0.5 DF, QD
  19. DEKRISTOL [Concomitant]
     Dosage: 1 DF, QW
  20. VIGANTOLETTEN [Concomitant]
     Dosage: 1 DF, QD
  21. CALCITRAT [Concomitant]
     Dosage: 2 DF, BID
  22. VIT B12 [Concomitant]
  23. EMSER SALT [Concomitant]
     Route: 055
  24. MUCOSOLVAN [Concomitant]
     Dosage: 2-3 DF, QD
     Route: 055
  25. OXYGEN THERAPY [Concomitant]
     Dosage: 3000 ML/MIN

REACTIONS (6)
  - Epilepsy [Recovered/Resolved with Sequelae]
  - Fall [Recovering/Resolving]
  - Head injury [Recovering/Resolving]
  - Haemorrhage [Recovering/Resolving]
  - Visual impairment [Recovering/Resolving]
  - Palpitations [Recovering/Resolving]
